FAERS Safety Report 9094794 (Version 1)
Quarter: 2013Q1

REPORT INFORMATION
  Report Type: Spontaneous
  Country: US (occurrence: None)
  Receive Date: 20130214
  Receipt Date: 20130214
  Transmission Date: 20140127
  Serious: Yes (Other)
  Sender: FDA-Public Use
  Company Number: None

PATIENT
  Age: 74 Year
  Sex: Male
  Weight: 87.09 kg

DRUGS (2)
  1. VIDAZA 100 MG CELGENE [Suspect]
     Indication: MYELODYSPLASTIC SYNDROME
     Dosage: 150 MG  DAILY FOR 5 DAYS  IV
     Route: 042
     Dates: start: 20130211, end: 20130212
  2. ALLOPURINOL [Concomitant]

REACTIONS (1)
  - Rash pruritic [None]
